FAERS Safety Report 8854605 (Version 1)
Quarter: 2012Q4

REPORT INFORMATION
  Report Type: 
  Country: CO (occurrence: CO)
  Receive Date: 20121023
  Receipt Date: 20121023
  Transmission Date: 20130627
  Serious: Yes (Hospitalization, Other)
  Sender: FDA-Public Use
  Company Number: CO-PFIZER INC-2012262084

PATIENT
  Age: 78 Year
  Sex: Male

DRUGS (2)
  1. NORVAS [Suspect]
     Indication: HYPERTENSION
     Dosage: 5mg, 1x/day
     Route: 048
     Dates: start: 2009
  2. ACETAMINOPHEN [Concomitant]
     Indication: PAIN
     Dosage: UNK; as needed
     Route: 048
     Dates: start: 2006

REACTIONS (8)
  - Stomach mass [Unknown]
  - Renal surgery [Unknown]
  - Appendicitis [Recovering/Resolving]
  - Gastritis [Unknown]
  - Syncope [Unknown]
  - Varicocele [Unknown]
  - Headache [Not Recovered/Not Resolved]
  - Pain in extremity [Not Recovered/Not Resolved]
